FAERS Safety Report 16768632 (Version 2)
Quarter: 2019Q3

REPORT INFORMATION
  Report Type: Spontaneous
  Country: US (occurrence: US)
  Receive Date: 20190903
  Receipt Date: 20190906
  Transmission Date: 20191005
  Serious: Yes (Hospitalization)
  Sender: FDA-Public Use
  Company Number: PHHY2019US202065

PATIENT
  Age: 20 Month
  Sex: Female

DRUGS (2)
  1. CARBAMAZEPINE. [Suspect]
     Active Substance: CARBAMAZEPINE
     Indication: PRODUCT USED FOR UNKNOWN INDICATION
     Dosage: UNK
     Route: 065
  2. CARBAMAZEPINE. [Suspect]
     Active Substance: CARBAMAZEPINE
     Route: 048

REACTIONS (12)
  - Febrile convulsion [Recovered/Resolved]
  - Joint hyperextension [Unknown]
  - Pyrexia [Unknown]
  - Unresponsive to stimuli [Unknown]
  - Partial seizures [Recovered/Resolved]
  - Sedation [Unknown]
  - Hypokalaemia [Unknown]
  - Metabolic acidosis [Unknown]
  - Generalised tonic-clonic seizure [Recovered/Resolved]
  - Mental status changes [Recovered/Resolved]
  - Hypotonia [Unknown]
  - Accidental overdose [Unknown]
